FAERS Safety Report 20336357 (Version 1)
Quarter: 2022Q1

REPORT INFORMATION
  Report Type: Spontaneous
  Country: US (occurrence: None)
  Receive Date: 20220114
  Receipt Date: 20220114
  Transmission Date: 20220423
  Serious: Yes (Hospitalization, Other)
  Sender: FDA-Public Use
  Company Number: None

PATIENT
  Sex: Male

DRUGS (1)
  1. HUMIRA [Suspect]
     Active Substance: ADALIMUMAB
     Indication: Colitis
     Dosage: 40MG EVERY 2 WKS SQ?
     Route: 058
     Dates: start: 20211207

REACTIONS (4)
  - Pain in extremity [None]
  - Neuropathy peripheral [None]
  - Gait inability [None]
  - Walking aid user [None]
